FAERS Safety Report 23319537 (Version 1)
Quarter: 2023Q4

REPORT INFORMATION
  Report Type: Spontaneous
  Country: US (occurrence: US)
  Receive Date: 20231220
  Receipt Date: 20231220
  Transmission Date: 20240109
  Serious: No
  Sender: FDA-Public Use
  Company Number: US-Accord-298594

PATIENT
  Sex: Female
  Weight: 56.7 kg

DRUGS (1)
  1. BUPROPION HYDROCHLORIDE [Suspect]
     Active Substance: BUPROPION HYDROCHLORIDE
     Indication: Depression
     Dosage: STRENGTH: 150MG, EXTENDED-?RELEASE TABLETS, ONCE A DAY
     Dates: start: 20230125

REACTIONS (1)
  - Insomnia [Not Recovered/Not Resolved]
